FAERS Safety Report 24719507 (Version 2)
Quarter: 2024Q4

REPORT INFORMATION
  Report Type: Report from Study
  Country: CA (occurrence: CA)
  Receive Date: 20241211
  Receipt Date: 20241216
  Transmission Date: 20250115
  Serious: Yes (Hospitalization)
  Sender: ULTRAGENYX PHARMACEUTICAL
  Company Number: CA-ULTRAGENYX PHARMACEUTICAL INC.-CA-UGX-24-02329

PATIENT
  Sex: Female

DRUGS (1)
  1. DOJOLVI [Suspect]
     Active Substance: TRIHEPTANOIN
     Indication: Fatty acid oxidation disorder
     Dosage: UNK
     Route: 048
     Dates: start: 20170518

REACTIONS (6)
  - Gastrointestinal disorder [Unknown]
  - Hepatomegaly [Unknown]
  - Blood creatine phosphokinase increased [Unknown]
  - Drug intolerance [Unknown]
  - Ventricular assist device insertion [Unknown]
  - Hypertrophic cardiomyopathy [Unknown]
